FAERS Safety Report 19158491 (Version 2)
Quarter: 2021Q2

REPORT INFORMATION
  Report Type: Spontaneous
  Country: ES (occurrence: ES)
  Receive Date: 20210420
  Receipt Date: 20210627
  Transmission Date: 20210717
  Serious: Yes (Hospitalization)
  Sender: FDA-Public Use
  Company Number: NVSC2021ES085002

PATIENT
  Age: 29 Year
  Sex: Male

DRUGS (2)
  1. TACROLIMUS. [Suspect]
     Active Substance: TACROLIMUS
     Indication: IMMUNOSUPPRESSANT DRUG THERAPY
  2. TACROLIMUS. [Suspect]
     Active Substance: TACROLIMUS
     Indication: BONE MARROW TRANSPLANT
     Dosage: 2 MG, QD
     Route: 065

REACTIONS (2)
  - Bowen^s disease [Recovered/Resolved]
  - Product use in unapproved indication [Unknown]
